FAERS Safety Report 17785279 (Version 1)
Quarter: 2020Q2

REPORT INFORMATION
  Report Type: Spontaneous
  Country: ES (occurrence: ES)
  Receive Date: 20200514
  Receipt Date: 20200514
  Transmission Date: 20200714
  Serious: Yes (Other)
  Sender: FDA-Public Use
  Company Number: ES-TEVA-2020-ES-1234540

PATIENT
  Age: 71 Year
  Sex: Male

DRUGS (6)
  1. ADIRO 100 MG COMPRIMIDOS GASTRORRESISTENTES EFG [Concomitant]
     Active Substance: ASPIRIN
  2. CARDYL 20 MG COMPRIMIDOS RECUBIERTOS CON PELICULA, 28 COMPRIMIDOS [Concomitant]
  3. BISOPROLOL 2,5 MG 28 COMPRIMIDOS [Suspect]
     Active Substance: BISOPROLOL
     Indication: CHEST PAIN
     Dosage: 0.5-0-0-0, UNIT DOSE: 1.25 MG
     Route: 048
     Dates: start: 20200227, end: 20200415
  4. ORFIDAL 1 MG COMPRIMIDOS, 50 COMPRIMIDOS [Concomitant]
     Active Substance: LORAZEPAM
  5. DOLQUINE 200 MG COMPRIMIDOS RECUBIERTOS, 30 COMPRIMIDOS [Concomitant]
     Active Substance: HYDROXYCHLOROQUINE SULFATE
  6. OMEPRAZOL 20 MG 28 CAPSULAS [Concomitant]

REACTIONS (2)
  - Hallucination, tactile [Recovered/Resolved]
  - Hallucination, visual [Recovered/Resolved]

NARRATIVE: CASE EVENT DATE: 202004
